FAERS Safety Report 16011695 (Version 1)
Quarter: 2019Q1

REPORT INFORMATION
  Report Type: Spontaneous
  Country: US (occurrence: US)
  Receive Date: 20190227
  Receipt Date: 20190227
  Transmission Date: 20190418
  Serious: No
  Sender: FDA-Public Use
  Company Number: US-PFIZER INC-2019083517

PATIENT
  Age: 61 Year
  Sex: Female
  Weight: 102.4 kg

DRUGS (1)
  1. IBRANCE [Suspect]
     Active Substance: PALBOCICLIB
     Indication: BREAST CANCER METASTATIC
     Dosage: 125 MG, CYCLIC[D1-21 Q28 DAYS]
     Route: 048
     Dates: start: 20161102

REACTIONS (1)
  - Infection [Unknown]
